FAERS Safety Report 17574634 (Version 1)
Quarter: 2020Q1

REPORT INFORMATION
  Report Type: Report from Study
  Country: JP (occurrence: JP)
  Receive Date: 20200324
  Receipt Date: 20200324
  Transmission Date: 20200409
  Serious: Yes (Death, Other)
  Sender: FDA-Public Use
  Company Number: JP-RECORDATI RARE DISEASES-2081909

PATIENT
  Age: 67 Year
  Sex: Female

DRUGS (8)
  1. SIGNIFOR LAR [Suspect]
     Active Substance: PASIREOTIDE PAMOATE
     Route: 030
     Dates: start: 20180319
  2. HUMALOG [Concomitant]
     Active Substance: INSULIN LISPRO
  3. SIGNIFOR LAR [Suspect]
     Active Substance: PASIREOTIDE PAMOATE
     Route: 030
     Dates: start: 20180214
  4. SIGNIFOR LAR [Suspect]
     Active Substance: PASIREOTIDE PAMOATE
     Route: 030
     Dates: start: 20180416
  5. SIGNIFOR LAR [Suspect]
     Active Substance: PASIREOTIDE PAMOATE
     Route: 030
     Dates: start: 20180514
  6. INSULIN GLARGINE BS [Concomitant]
     Active Substance: INSULIN GLARGINE
  7. SIGNIFOR LAR [Suspect]
     Active Substance: PASIREOTIDE PAMOATE
     Indication: ACROMEGALY
     Route: 030
     Dates: start: 20171218
  8. SIGNIFOR LAR [Suspect]
     Active Substance: PASIREOTIDE PAMOATE
     Route: 030
     Dates: start: 20180115

REACTIONS (6)
  - Tumour haemorrhage [Fatal]
  - Tumour compression [Unknown]
  - Concomitant disease progression [Unknown]
  - Neoplasm progression [Unknown]
  - Drug ineffective [Unknown]
  - Visual field defect [Unknown]

NARRATIVE: CASE EVENT DATE: 20180527
